FAERS Safety Report 15619536 (Version 1)
Quarter: 2018Q4

REPORT INFORMATION
  Report Type: Report from Study
  Country: None (occurrence: RO)
  Receive Date: 20181115
  Receipt Date: 20181115
  Transmission Date: 20190205
  Serious: Yes (Hospitalization)
  Sender: FDA-Public Use
  Company Number: RO-ABBVIE-18K-135-2554823-00

PATIENT
  Sex: Male

DRUGS (6)
  1. HUMIRA [Suspect]
     Active Substance: ADALIMUMAB
     Indication: PSORIASIS
     Route: 058
     Dates: start: 20120215, end: 20181027
  2. CAVINTON [Concomitant]
     Active Substance: VINPOCETINE
     Indication: DIZZINESS
     Route: 048
  3. HUMIRA [Suspect]
     Active Substance: ADALIMUMAB
     Route: 058
     Dates: start: 20181110
  4. PIRACETAM [Concomitant]
     Active Substance: PIRACETAM
     Indication: DIZZINESS
     Route: 048
  5. GABARAN [Concomitant]
     Active Substance: GABAPENTIN
     Indication: DIZZINESS
     Route: 048
  6. BETASERC [Concomitant]
     Active Substance: BETAHISTINE
     Indication: DIZZINESS
     Route: 048

REACTIONS (4)
  - Dizziness [Recovering/Resolving]
  - Headache [Recovered/Resolved]
  - Fall [Unknown]
  - Vision blurred [Recovered/Resolved]

NARRATIVE: CASE EVENT DATE: 2018
